FAERS Safety Report 5253483-1 (Version None)
Quarter: 2007Q1

REPORT INFORMATION
  Report Type: 
  Country: None (occurrence: None)
  Receive Date: 20070301
  Receipt Date: 20070227
  Transmission Date: 20070707
  Serious: Yes (Disabling)
  Sender: FDA-Public Use
  Company Number: US-BOEHRINGER INGELHEIM PHARMACEUTICALS, INC.-2007-BP-02773BP

PATIENT
  Age: 91 Year
  Sex: Male

DRUGS (7)
  1. FLOMAX [Suspect]
     Indication: BENIGN PROSTATIC HYPERPLASIA
     Route: 048
     Dates: end: 20040901
  2. THYROID MEDICINE [Concomitant]
  3. DOXAZOSIN MESYLATE [Concomitant]
  4. COZAAR [Concomitant]
  5. SPIRONOLACTONE [Concomitant]
  6. XALATAN [Concomitant]
  7. LEVOBUNOLOL [Concomitant]

REACTIONS (2)
  - BLINDNESS [None]
  - CATARACT [None]
